FAERS Safety Report 6686909-7 (Version None)
Quarter: 2010Q2

REPORT INFORMATION
  Report Type: 
  Country: None (occurrence: None)
  Receive Date: 20100416
  Receipt Date: 20100416
  Transmission Date: 20101027
  Serious: Yes (Life-Threatening, Hospitalization, Disabling)
  Sender: FDA-Public Use
  Company Number: None

PATIENT
  Age: 66 Year
  Sex: Male
  Weight: 88.4514 kg

DRUGS (1)
  1. UROXATRAL [Suspect]

REACTIONS (9)
  - CONFUSIONAL STATE [None]
  - DEAFNESS [None]
  - DIZZINESS [None]
  - EAR INJURY [None]
  - FALL [None]
  - HAEMORRHAGE [None]
  - LOSS OF CONSCIOUSNESS [None]
  - SKULL FRACTURE [None]
  - UPPER RESPIRATORY TRACT INFECTION [None]
